FAERS Safety Report 16093780 (Version 1)
Quarter: 2019Q1

REPORT INFORMATION
  Report Type: Spontaneous
  Country: IT (occurrence: IT)
  Receive Date: 20190320
  Receipt Date: 20190320
  Transmission Date: 20190418
  Serious: Yes (Hospitalization)
  Sender: FDA-Public Use
  Company Number: IT-ACCORD-114342

PATIENT
  Age: 91 Year
  Sex: Female

DRUGS (7)
  1. CARDICOR [Concomitant]
     Active Substance: BISOPROLOL
  2. NITROCOR [Concomitant]
     Active Substance: NITROGLYCERIN
  3. AZOPT [Concomitant]
     Active Substance: BRINZOLAMIDE
     Dosage: STRENGTH:10 MG/ML
  4. EPREX [Concomitant]
     Active Substance: ERYTHROPOIETIN
  5. FUROSEMIDE. [Suspect]
     Active Substance: FUROSEMIDE
     Indication: HYPERTENSION
     Route: 048
     Dates: start: 20180101, end: 20181007
  6. PEPTAZOL [Concomitant]
     Active Substance: PANTOPRAZOLE SODIUM
  7. ZAROXOLYN [Suspect]
     Active Substance: METOLAZONE
     Indication: OEDEMA
     Route: 048
     Dates: start: 20181004, end: 20181007

REACTIONS (2)
  - Presyncope [Unknown]
  - Hypokalaemia [Unknown]

NARRATIVE: CASE EVENT DATE: 20181007
